FAERS Safety Report 5376272-6 (Version None)
Quarter: 2007Q3

REPORT INFORMATION
  Report Type: 
  Country: None (occurrence: None)
  Receive Date: 20070702
  Receipt Date: 20070626
  Transmission Date: 20080115
  Serious: Yes (Other)
  Sender: FDA-Public Use
  Company Number: BE-ROCHE-504280

PATIENT
  Age: 60 Year
  Sex: Female

DRUGS (2)
  1. TICLID [Suspect]
     Route: 048
     Dates: start: 20070302, end: 20070301
  2. TICLID [Suspect]
     Route: 048
     Dates: start: 20070301

REACTIONS (4)
  - ALLERGIC RESPIRATORY SYMPTOM [None]
  - LUPUS-LIKE SYNDROME [None]
  - MYALGIA [None]
  - PARAESTHESIA [None]
